FAERS Safety Report 11184938 (Version 2)
Quarter: 2015Q3

REPORT INFORMATION
  Report Type: Report from Study
  Country: US (occurrence: US)
  Receive Date: 20150612
  Receipt Date: 20150821
  Transmission Date: 20151125
  Serious: Yes (Hospitalization)
  Sender: FDA-Public Use
  Company Number: US-ACTELION-A-NJ2015-116582

PATIENT
  Age: 63 Year
  Sex: Female

DRUGS (3)
  1. BUMEX [Suspect]
     Active Substance: BUMETANIDE
     Indication: PRODUCT USED FOR UNKNOWN INDICATION
     Dosage: UNK
     Route: 065
  2. MACITENTAN [Suspect]
     Active Substance: MACITENTAN
     Indication: PULMONARY HYPERTENSION
     Dosage: 10 MG, QD
     Route: 048
  3. FIORICET [Concomitant]
     Active Substance: ACETAMINOPHEN\BUTALBITAL\CAFFEINE

REACTIONS (14)
  - Visual impairment [Unknown]
  - Liver disorder [Unknown]
  - Haemoptysis [Unknown]
  - Burning sensation [Unknown]
  - Atrial fibrillation [Unknown]
  - Headache [Unknown]
  - Atrial flutter [Unknown]
  - Drug hypersensitivity [Unknown]
  - Cataract operation [Unknown]
  - Cardiac failure [Unknown]
  - Fluid retention [Unknown]
  - Ventricular extrasystoles [Unknown]
  - Dyspnoea [Unknown]
  - Renal disorder [Unknown]
